FAERS Safety Report 21304319 (Version 1)
Quarter: 2022Q3

REPORT INFORMATION
  Report Type: Spontaneous
  Country: US (occurrence: None)
  Receive Date: 20220907
  Receipt Date: 20220907
  Transmission Date: 20221027
  Serious: No
  Sender: FDA-Public Use
  Company Number: US-ARIS GLOBAL-202107-1262

PATIENT
  Age: 78 Year
  Sex: Female

DRUGS (2)
  1. OXERVATE [Suspect]
     Active Substance: CENEGERMIN-BKBJ
     Indication: Neurotrophic keratopathy
     Route: 047
     Dates: start: 20210716
  2. Serum Tears [Concomitant]

REACTIONS (4)
  - Eye pain [Unknown]
  - Eye discharge [Unknown]
  - Ocular discomfort [Unknown]
  - Photophobia [Unknown]

NARRATIVE: CASE EVENT DATE: 20210726
